FAERS Safety Report 7618806-4 (Version None)
Quarter: 2011Q3

REPORT INFORMATION
  Report Type: 
  Country: None (occurrence: None)
  Receive Date: 20110718
  Receipt Date: 20080815
  Transmission Date: 20111222
  Serious: Yes (Death, Other)
  Sender: FDA-Public Use
  Company Number: US-BAYER-200811969NA

PATIENT
  Sex: Female
  Weight: 59.41 kg

DRUGS (25)
  1. PROHANCE [Suspect]
     Indication: VENOGRAM
     Dosage: 5 ML, ONCE
     Dates: start: 20061027, end: 20061027
  2. PROHANCE [Suspect]
     Dosage: 10 ML, ONCE
     Dates: start: 20070102, end: 20070102
  3. RENAGEL [Concomitant]
  4. PROGRAF [Concomitant]
  5. MAGNEVIST [Suspect]
     Indication: ANGIOGRAM
     Dosage: UNK, ONCE
     Dates: start: 20011107, end: 20011107
  6. OPTIMARK [Suspect]
  7. GADOLINIUM IN UNSPECIFIED DRUG [Suspect]
     Indication: NUCLEAR MAGNETIC RESONANCE IMAGING
     Dosage: UNK, ONCE
     Dates: start: 20001207, end: 20001207
  8. COUMADIN [Concomitant]
  9. HUMULIN R [Concomitant]
  10. MULTIHANCE [Suspect]
  11. PROHANCE [Suspect]
     Indication: ANGIOGRAM
     Dosage: 40 ML, ONCE
     Dates: start: 20050925, end: 20050925
  12. CELLCEPT [Concomitant]
  13. MAGNEVIST [Suspect]
     Dosage: UNK, ONCE
     Dates: start: 20011111, end: 20011111
  14. PROHANCE [Suspect]
     Indication: DIALYSIS DEVICE INSERTION
     Dosage: 40 ML, ONCE
     Dates: start: 20050926, end: 20050926
  15. EPOGEN [Concomitant]
  16. ALLOPURINOL [Concomitant]
  17. HUMULIN N [Concomitant]
  18. LEVOXYL [Concomitant]
  19. ACTOS [Concomitant]
  20. MAGNEVIST [Suspect]
     Indication: NUCLEAR MAGNETIC RESONANCE IMAGING BRAIN
     Dosage: UNK UNK, ONCE
     Dates: start: 20000819, end: 20000819
  21. SYNTHROID [Concomitant]
  22. MAGNEVIST [Suspect]
     Dosage: UNK, ONCE
     Dates: start: 20050117, end: 20050117
  23. OMNISCAN [Suspect]
  24. GADOLINIUM IN UNSPECIFIED DRUG [Suspect]
     Indication: NUCLEAR MAGNETIC RESONANCE IMAGING BRAIN
     Dosage: UNK UNK, ONCE
     Dates: start: 20000724, end: 20000724
  25. PHOSLO [Concomitant]

REACTIONS (7)
  - ANXIETY [None]
  - PULMONARY FIBROSIS [None]
  - NEPHROGENIC SYSTEMIC FIBROSIS [None]
  - FIBROSIS [None]
  - PAIN [None]
  - ANHEDONIA [None]
  - EMOTIONAL DISTRESS [None]
